FAERS Safety Report 25981017 (Version 1)
Quarter: 2025Q4

REPORT INFORMATION
  Report Type: Spontaneous
  Country: JP (occurrence: JP)
  Receive Date: 20251030
  Receipt Date: 20251030
  Transmission Date: 20260118
  Serious: Yes (Other)
  Sender: NOVO NORDISK
  Company Number: JP-NOVOPROD-1548943

PATIENT
  Sex: Female

DRUGS (1)
  1. VICTOZA [Suspect]
     Active Substance: LIRAGLUTIDE
     Indication: Diabetes mellitus
     Dosage: UNK
     Route: 058

REACTIONS (6)
  - Arrhythmia [Unknown]
  - Chest discomfort [Unknown]
  - Vision blurred [Recovering/Resolving]
  - Cough [Unknown]
  - Vascular insufficiency [Unknown]
  - Product dose omission in error [Unknown]
